FAERS Safety Report 8485872 (Version 2)
Quarter: 2012Q4

REPORT INFORMATION
  Report Type: 
  Country: SI (occurrence: SI)
  Receive Date: 20120330
  Receipt Date: 20121101
  Transmission Date: 20130627
  Serious: Yes (Other)
  Sender: FDA-Public Use
  Company Number: SI-RB-038634-12

PATIENT
  Age: 30 Year
  Sex: Male

DRUGS (4)
  1. SUBUTEX [Suspect]
     Indication: DRUG DEPENDENCE
     Route: 060
     Dates: start: 20060213, end: 20090215
  2. SUBUTEX [Suspect]
     Route: 060
     Dates: start: 20060213, end: 20090215
  3. SUBOXONE [Suspect]
     Indication: DRUG DEPENDENCE
     Route: 060
     Dates: start: 20090216
  4. SUBOXONE [Suspect]
     Route: 060

REACTIONS (1)
  - Testis cancer [Recovered/Resolved]
